FAERS Safety Report 4455290-6 (Version None)
Quarter: 2004Q3

REPORT INFORMATION
  Report Type: 
  Country: None (occurrence: None)
  Receive Date: 20040917
  Receipt Date: 20040826
  Transmission Date: 20050211
  Serious: Yes (Other)
  Sender: FDA-Public Use
  Company Number: GBS040915505

PATIENT
  Age: 31 Year
  Sex: Male

DRUGS (3)
  1. FLUOXETINE [Suspect]
     Dosage: 20 MG DAY
     Dates: end: 20040326
  2. CLOZARIL [Concomitant]
  3. VALPROATE SODIUM [Concomitant]

REACTIONS (9)
  - ACCIDENTAL OVERDOSE [None]
  - AKINESIA [None]
  - BLOOD PRESSURE INCREASED [None]
  - CONVULSION [None]
  - DILATATION VENTRICULAR [None]
  - DRUG INTERACTION [None]
  - DRUG LEVEL INCREASED [None]
  - HEART RATE INCREASED [None]
  - MEDICATION ERROR [None]
